FAERS Safety Report 21429250 (Version 1)
Quarter: 2022Q4

REPORT INFORMATION
  Report Type: Spontaneous
  Country: FR (occurrence: FR)
  Receive Date: 20221009
  Receipt Date: 20221009
  Transmission Date: 20230113
  Serious: Yes (Hospitalization)
  Sender: FDA-Public Use
  Company Number: None

PATIENT
  Age: 56 Year
  Sex: Female

DRUGS (7)
  1. PREDNISOLONE [Suspect]
     Active Substance: PREDNISOLONE
     Indication: Tubulointerstitial nephritis
     Dosage: UNIT DOSE 60 MG, FREQ TIME 1 DAY, DURATION 3 DAYS
     Dates: start: 20220805
  2. CANDESARTAN CILEXETIL [Concomitant]
     Active Substance: CANDESARTAN CILEXETIL
     Indication: Hypertension
     Dosage: UNIT DOSE: 8 MG, FREQ TIME 1 DAY
  3. ESIDREX [Concomitant]
     Active Substance: HYDROCHLOROTHIAZIDE
     Indication: Hypertension
     Dosage: UNIT DOSE: 0.5 DF, FREQ TIME 1 DAY, STRENGTH: 25 MG
  4. TERALITHE [Concomitant]
     Active Substance: LITHIUM CARBONATE
     Indication: Bipolar disorder
     Dosage: PROLONGED-RELEASE SCORED TABLET, ALTERNATE 1 TABLET AND 1/2 TABLET PER DAY (EVERY OTHER DAY)
  5. AMLODIPINE BESYLATE [Concomitant]
     Active Substance: AMLODIPINE BESYLATE
     Indication: Hypertension
     Dosage: UNIT DOSE 1 DF, FREQ TIME 1 DAY, STRENGTH: 25 MG
  6. CELECTOL [Concomitant]
     Active Substance: CELIPROLOL HYDROCHLORIDE
     Indication: Hypertension
     Dosage: UNIT DOSE: 1 DF, FREQ TIME 1 DAY
  7. FENOFIBRATE [Concomitant]
     Active Substance: FENOFIBRATE
     Indication: Hypercholesterolaemia
     Dosage: UNIT DOSE: 1 DF, FREQ TIME

REACTIONS (1)
  - Psychiatric decompensation [Not Recovered/Not Resolved]

NARRATIVE: CASE EVENT DATE: 20220808
